FAERS Safety Report 17424868 (Version 1)
Quarter: 2020Q1

REPORT INFORMATION
  Report Type: Report from Study
  Country: PA (occurrence: PA)
  Receive Date: 20200217
  Receipt Date: 20200217
  Transmission Date: 20200409
  Serious: Yes (Other)
  Sender: FDA-Public Use
  Company Number: PHHY2015PA150512

PATIENT
  Age: 63 Year
  Sex: Female
  Weight: 78.46 kg

DRUGS (3)
  1. TASIGNA [Suspect]
     Active Substance: NILOTINIB
     Dosage: 200 MG, BID
     Route: 048
  2. TASIGNA [Suspect]
     Active Substance: NILOTINIB
     Indication: CHRONIC MYELOID LEUKAEMIA
     Dosage: 400 MG, BID
     Route: 048
     Dates: start: 20151101
  3. TASIGNA [Suspect]
     Active Substance: NILOTINIB
     Dosage: UNK UNK, QD
     Route: 065

REACTIONS (24)
  - Pharyngeal oedema [Recovering/Resolving]
  - Anxiety [Recovering/Resolving]
  - Bone pain [Unknown]
  - Nasopharyngitis [Unknown]
  - Miliaria [Recovering/Resolving]
  - Hypersensitivity [Not Recovered/Not Resolved]
  - Hypokinesia [Recovering/Resolving]
  - Fatigue [Recovering/Resolving]
  - Feeling abnormal [Unknown]
  - Tendon pain [Unknown]
  - Pain [Not Recovered/Not Resolved]
  - Pigmentation disorder [Unknown]
  - Dysstasia [Unknown]
  - Chest pain [Not Recovered/Not Resolved]
  - Muscle spasms [Unknown]
  - Blood disorder [Unknown]
  - Inappropriate schedule of product administration [Unknown]
  - Pulmonary oedema [Recovering/Resolving]
  - Oropharyngeal pain [Unknown]
  - Asthenia [Unknown]
  - Dizziness [Unknown]
  - Hyperhidrosis [Unknown]
  - Arthralgia [Unknown]
  - Alopecia [Unknown]
